FAERS Safety Report 4281935-X (Version None)
Quarter: 2004Q1

REPORT INFORMATION
  Report Type: 
  Country: None (occurrence: None)
  Receive Date: 20040128
  Receipt Date: 20040119
  Transmission Date: 20041129
  Serious: Yes (Other)
  Sender: FDA-Public Use
  Company Number: 200410551GDDC

PATIENT
  Age: 27 Year
  Sex: Male
  Weight: 89 kg

DRUGS (2)
  1. INSULIN GLARGINE SOLUTION NOS [Suspect]
     Indication: DIABETES MELLITUS
     Dosage: 35 U QD SC
     Route: 058
     Dates: start: 20030501
  2. HUMALOG [Concomitant]

REACTIONS (2)
  - CONVULSION [None]
  - HYPOGLYCAEMIA [None]
